FAERS Safety Report 6221339-3 (Version None)
Quarter: 2009Q2

REPORT INFORMATION
  Report Type: 
  Country: None (occurrence: None)
  Receive Date: 20090610
  Receipt Date: 20090605
  Transmission Date: 20091009
  Serious: Yes (Hospitalization)
  Sender: FDA-Public Use
  Company Number: US-AMGEN-US347857

PATIENT
  Sex: Male
  Weight: 108.1 kg

DRUGS (7)
  1. NPLATE [Suspect]
     Indication: IDIOPATHIC THROMBOCYTOPENIC PURPURA
     Dates: start: 20081211, end: 20081224
  2. CORTICOSTEROIDS [Concomitant]
     Dates: start: 20081119
  3. PROSCAR [Concomitant]
  4. VYTORIN [Concomitant]
  5. PREDNISONE [Concomitant]
  6. FEOSOL [Concomitant]
  7. ALFUZOSIN HCL [Concomitant]

REACTIONS (2)
  - DEEP VEIN THROMBOSIS [None]
  - PULMONARY EMBOLISM [None]
